FAERS Safety Report 21209828 (Version 1)
Quarter: 2022Q3

REPORT INFORMATION
  Report Type: Report from Study
  Country: AR (occurrence: AR)
  Receive Date: 20220813
  Receipt Date: 20220813
  Transmission Date: 20221027
  Serious: Yes (Hospitalization)
  Sender: FDA-Public Use
  Company Number: AR-NOVARTISPH-NVSC2022AR183702

PATIENT
  Sex: Male

DRUGS (1)
  1. OMNITROPE [Suspect]
     Active Substance: SOMATROPIN
     Indication: Chronic kidney disease
     Dosage: 1.2 MG, QD (10MG/ 1.5ML)
     Route: 058
     Dates: start: 20220802

REACTIONS (2)
  - Fistula [Unknown]
  - Product use in unapproved indication [Unknown]
